FAERS Safety Report 4685213-6 (Version None)
Quarter: 2005Q2

REPORT INFORMATION
  Report Type: 
  Country: None (occurrence: None)
  Receive Date: 20050608
  Receipt Date: 20050513
  Transmission Date: 20051028
  Serious: Yes (Hospitalization)
  Sender: FDA-Public Use
  Company Number: JP-BOEHRINGER INGELHEIM PHARMACEUTICALS, INC.-2005-BP-08026NB

PATIENT
  Sex: Male

DRUGS (8)
  1. SPIRIVA [Suspect]
     Indication: EMPHYSEMA
     Route: 055
     Dates: start: 20050426, end: 20050508
  2. CLARUTE [Concomitant]
     Indication: PALPITATIONS
     Route: 048
     Dates: start: 20040106, end: 20050508
  3. SPELEAR [Concomitant]
     Indication: EMPHYSEMA
     Route: 048
     Dates: start: 20040106, end: 20050508
  4. SINGULAIR [Concomitant]
     Indication: EMPHYSEMA
     Route: 048
     Dates: start: 20040210, end: 20050507
  5. RABEPRAZOLE SODIUM [Concomitant]
     Indication: REFLUX OESOPHAGITIS
     Route: 048
     Dates: start: 20041013, end: 20050508
  6. MEPTIN [Concomitant]
     Indication: EMPHYSEMA
     Route: 048
     Dates: start: 20040106, end: 20050508
  7. FLEMPHYLINE [Concomitant]
     Indication: EMPHYSEMA
     Route: 048
     Dates: start: 20041216, end: 20050508
  8. COUGHNOL (AMBROXOL HYDROCHLORIDE) [Concomitant]
     Indication: EMPHYSEMA
     Route: 048
     Dates: start: 20041216, end: 20050507

REACTIONS (1)
  - PNEUMOTHORAX [None]
